FAERS Safety Report 6646489-9 (Version None)
Quarter: 2010Q1

REPORT INFORMATION
  Report Type: 
  Country: None (occurrence: None)
  Receive Date: 20100322
  Receipt Date: 20100322
  Transmission Date: 20100710
  Serious: Yes (Other)
  Sender: FDA-Public Use
  Company Number: None

PATIENT
  Age: 39 Month
  Sex: Male
  Weight: 13.6079 kg

DRUGS (1)
  1. SINGULAIR [Suspect]
     Indication: ASTHMA PROPHYLAXIS
     Dosage: 4 MG 1X/DAY CHEWABLE
     Route: 048
     Dates: start: 20091223, end: 20100220

REACTIONS (1)
  - AMNESIA [None]
